FAERS Safety Report 9408159 (Version 2)
Quarter: 2013Q3

REPORT INFORMATION
  Report Type: Spontaneous
  Country: DE (occurrence: None)
  Receive Date: 20130716
  Receipt Date: 20130801
  Transmission Date: 20140515
  Serious: Yes (Other)
  Sender: FDA-Public Use
  Company Number: 20130333

PATIENT
  Age: 38 Year
  Sex: Female
  Weight: 53 kg

DRUGS (1)
  1. VENOFER [Suspect]
     Indication: IRON DEFICIENCY
     Dosage: 5X5 ML IN 500 NACL
     Route: 041
     Dates: start: 20130204, end: 20130204

REACTIONS (11)
  - Shock [None]
  - Contusion [None]
  - Fall [None]
  - Feeling cold [None]
  - Micturition urgency [None]
  - Orthostatic intolerance [None]
  - Abdominal pain upper [None]
  - Dizziness [None]
  - Hyperventilation [None]
  - Nausea [None]
  - Malaise [None]
